FAERS Safety Report 7366148-7 (Version None)
Quarter: 2011Q1

REPORT INFORMATION
  Report Type: 
  Country: None (occurrence: None)
  Receive Date: 20110317
  Receipt Date: 20110317
  Transmission Date: 20110831
  Serious: Yes (Hospitalization)
  Sender: FDA-Public Use
  Company Number: None

PATIENT
  Sex: Male
  Weight: 90.4 kg

DRUGS (6)
  1. DOXORUBICIN HCL [Suspect]
     Dosage: 106 MG (53 MG ON 12/7,53MG ON 12/14)
  2. VINCRISTINE SULFATE [Suspect]
     Dosage: 8 MG ( 2 MG ON 12/7, 2 MG ON 12/14, 2MG ON1/15,
  3. CYCLOPHOSPHAMIDE [Suspect]
     Dosage: 2120 IU (ONCE ON 12/29/2010)
     Dates: start: 20101229
  4. DEXAMETHASONE [Suspect]
     Dosage: 100 MG ( 10 MG BID PER DAY ON 12/3,12/4,12/5,12/5,12/14)
  5. CYTARABINE [Suspect]
     Dosage: 313.5 MG(CYTARABINE: 156 MG ON  01/10/2011, 157.5 MG ON 01/13/2011
  6. PEG-L ASPARAGINASE (K-H) [Suspect]
     Dosage: 10375 IU IU, 5150 IU ON 12/3,5225IU 1/15/2011)

REACTIONS (1)
  - FEBRILE NEUTROPENIA [None]
